FAERS Safety Report 4802843-9 (Version None)
Quarter: 2005Q4

REPORT INFORMATION
  Report Type: 
  Country: None (occurrence: None)
  Receive Date: 20051017
  Receipt Date: 20051017
  Transmission Date: 20060501
  Serious: Yes (Hospitalization)
  Sender: FDA-Public Use
  Company Number: None

PATIENT
  Sex: Male

DRUGS (2)
  1. CHOP [Suspect]
     Dates: start: 20050921
  2. CAMPATH (ALEMTUZUMAB ) [Suspect]

REACTIONS (5)
  - BLOOD SODIUM DECREASED [None]
  - DEHYDRATION [None]
  - FATIGUE [None]
  - MALAISE [None]
  - MUCOSAL INFLAMMATION [None]
